FAERS Safety Report 11076014 (Version 2)
Quarter: 2015Q2

REPORT INFORMATION
  Report Type: Spontaneous
  Country: DE (occurrence: DE)
  Receive Date: 20150429
  Receipt Date: 20150521
  Transmission Date: 20150821
  Serious: Yes (Death, Hospitalization, Other)
  Sender: FDA-Public Use
  Company Number: DE-GILEAD-2015-0140761

PATIENT
  Age: 65 Year
  Sex: Female

DRUGS (7)
  1. ACIC                               /00587301/ [Concomitant]
  2. ALLOPURINOL. [Concomitant]
     Active Substance: ALLOPURINOL
  3. COTRIM [Concomitant]
     Active Substance: SULFAMETHOXAZOLE\TRIMETHOPRIM
  4. PANTOZOL [Concomitant]
     Active Substance: PANTOPRAZOLE SODIUM
  5. ZYDELIG [Suspect]
     Active Substance: IDELALISIB
     Indication: MANTLE CELL LYMPHOMA RECURRENT
     Dosage: 150 MG, UNK
     Route: 048
     Dates: start: 20150204
  6. BISOPROLOL [Concomitant]
     Active Substance: BISOPROLOL
  7. DONOR LYMPHOCYTE INFUSION [Suspect]
     Active Substance: UNSPECIFIED INGREDIENT
     Indication: PRODUCT USED FOR UNKNOWN INDICATION
     Route: 065

REACTIONS (5)
  - Death [Fatal]
  - Diarrhoea [Recovering/Resolving]
  - Rash [Unknown]
  - General physical health deterioration [Unknown]
  - Lymphoma [Unknown]

NARRATIVE: CASE EVENT DATE: 20150223
